FAERS Safety Report 24820594 (Version 2)
Quarter: 2025Q1

REPORT INFORMATION
  Report Type: Spontaneous
  Country: JP (occurrence: JP)
  Receive Date: 20250108
  Receipt Date: 20250205
  Transmission Date: 20250408
  Serious: Yes (Other)
  Sender: Visiox
  Company Number: JP-SANTEN-2024-AER-00552

PATIENT
  Age: 56 Year
  Sex: Female

DRUGS (1)
  1. OMIDENEPAG ISOPROPYL [Suspect]
     Active Substance: OMIDENEPAG ISOPROPYL
     Indication: Glaucoma
     Dosage: 1 DROP ONCE A DAY, BOTH EYES
     Route: 047
     Dates: start: 20200225, end: 20240911

REACTIONS (2)
  - Macular oedema [Recovered/Resolved]
  - Macular oedema [Recovered/Resolved]

NARRATIVE: CASE EVENT DATE: 20240924
